FAERS Safety Report 6816735-7 (Version None)
Quarter: 2010Q3

REPORT INFORMATION
  Report Type: 
  Country: None (occurrence: None)
  Receive Date: 20100706
  Receipt Date: 20100622
  Transmission Date: 20110219
  Serious: Yes (Death, Other)
  Sender: FDA-Public Use
  Company Number: PHHY2010US32243

PATIENT
  Sex: Female
  Weight: 82.27 kg

DRUGS (10)
  1. RECLAST [Suspect]
     Indication: OSTEOPOROSIS POSTMENOPAUSAL
     Dosage: 5 MG/ 100 ML
     Route: 042
     Dates: start: 20090720
  2. AGGRENOX [Concomitant]
  3. DENAVIR [Concomitant]
  4. ALTACE [Concomitant]
     Indication: HYPERTENSION
     Dosage: 0.25 MG DAILY
     Route: 048
     Dates: start: 20051206
  5. LEXAPRO [Concomitant]
  6. EXELON [Concomitant]
     Indication: DEMENTIA
     Dosage: 6 MG, Q12H
     Route: 048
     Dates: start: 20010301
  7. NAMENDA [Concomitant]
  8. PROTONIX [Concomitant]
     Indication: GASTROOESOPHAGEAL REFLUX DISEASE
     Dosage: 40 MG ONE TABLET DAILY
     Route: 048
     Dates: start: 20021112
  9. ZETIA [Concomitant]
     Indication: HYPERCHOLESTEROLAEMIA
     Dosage: 10 MG ONE TABLET DAILY
     Route: 048
     Dates: start: 20071026
  10. DIPYRIDAMOLE [Concomitant]

REACTIONS (4)
  - ARTERIOSCLEROSIS [None]
  - DEATH [None]
  - NAUSEA [None]
  - VOMITING [None]
